FAERS Safety Report 6267722-1 (Version None)
Quarter: 2009Q3

REPORT INFORMATION
  Report Type: 
  Country: None (occurrence: None)
  Receive Date: 20090714
  Receipt Date: 20090630
  Transmission Date: 20100115
  Serious: Yes (Death, Life-Threatening, Hospitalization)
  Sender: FDA-Public Use
  Company Number: PHBS2008FR03507

PATIENT
  Sex: Male
  Weight: 87 kg

DRUGS (22)
  1. LOTENSIN HCT [Suspect]
     Dosage: 50 MG, BID
     Route: 048
     Dates: start: 20020401, end: 20030401
  2. LOTENSIN HCT [Suspect]
     Dosage: 1 DF, QD
     Route: 048
     Dates: start: 20031103
  3. FLECAINIDE ACETATE [Suspect]
     Indication: ATRIAL FIBRILLATION
     Dosage: 50 MG, BID
     Route: 048
     Dates: start: 20021101, end: 20030401
  4. FLECAINIDE ACETATE [Suspect]
     Dosage: 50 MG, TID
     Route: 048
     Dates: start: 20030401, end: 20031103
  5. SOTALEX [Suspect]
     Indication: HYPERTENSION
     Dosage: 80 MG, BID
     Route: 048
     Dates: end: 20030401
  6. SOTALEX [Suspect]
     Dosage: 0.5 DF, QD
     Route: 048
     Dates: start: 20030401, end: 20030508
  7. SOTALEX [Suspect]
     Dosage: 80 MG, QD
     Route: 048
     Dates: start: 20030508, end: 20031103
  8. SOTALEX [Suspect]
     Dosage: 80 MG, BID
     Route: 048
     Dates: start: 20031103
  9. DISOPYRAMIDE [Suspect]
     Dosage: 250 MG, BID
     Route: 048
     Dates: start: 20031103
  10. SURBRONC [Concomitant]
     Dosage: 10 MG, QD
     Dates: start: 20030401
  11. ZOLPIDEM TARTRATE [Concomitant]
     Dosage: 10 MG
     Route: 048
  12. EUPRESSYL [Concomitant]
     Dosage: 60 MG, BID
     Route: 048
     Dates: start: 20030401
  13. LASIX [Concomitant]
     Dosage: 20 MG, QD
     Dates: start: 20030401
  14. TEGRETOL [Concomitant]
     Dosage: 400 MG
     Route: 048
     Dates: start: 20030401, end: 20030507
  15. TEGRETOL [Concomitant]
     Dosage: 200 MG
     Route: 048
     Dates: start: 20030508
  16. AVLOCARDYL [Concomitant]
     Dosage: UNK
     Dates: start: 20030101
  17. CORDARONE [Concomitant]
     Dosage: 200 MG
     Dates: start: 20021112
  18. FRAXIPARINE [Concomitant]
  19. PREVISCAN [Concomitant]
     Dosage: 20 MG
     Route: 048
  20. ANTIBIOTICS [Concomitant]
  21. MOTILIUM [Concomitant]
  22. GAVISCON                                /GFR/ [Concomitant]

REACTIONS (50)
  - ACUTE PULMONARY OEDEMA [None]
  - ANOXIC ENCEPHALOPATHY [None]
  - ASPIRATION BRONCHIAL [None]
  - ATRIAL FIBRILLATION [None]
  - BLOOD PRESSURE IMMEASURABLE [None]
  - BRONCHOPNEUMOPATHY [None]
  - CARDIAC ARREST [None]
  - CARDIAC FAILURE ACUTE [None]
  - CARDIAC MURMUR [None]
  - CARDIO-RESPIRATORY ARREST [None]
  - CEREBRAL DISORDER [None]
  - COAGULOPATHY [None]
  - COMA [None]
  - CYANOSIS [None]
  - DYSPEPSIA [None]
  - DYSPNOEA [None]
  - ELECTROCARDIOGRAM QT PROLONGED [None]
  - ENDOTRACHEAL INTUBATION [None]
  - EXTRASYSTOLES [None]
  - GASTRITIS [None]
  - GASTROINTESTINAL HAEMORRHAGE [None]
  - GASTROSTOMY TUBE INSERTION [None]
  - GLASGOW COMA SCALE ABNORMAL [None]
  - HAEMODYNAMIC INSTABILITY [None]
  - HEART RATE DECREASED [None]
  - HIATUS HERNIA [None]
  - HYPERTENSION [None]
  - INTERNATIONAL NORMALISED RATIO INCREASED [None]
  - LEFT VENTRICULAR HYPERTROPHY [None]
  - LOSS OF CONSCIOUSNESS [None]
  - LUNG DISORDER [None]
  - MALAISE [None]
  - MECHANICAL VENTILATION [None]
  - MEDIASTINAL DISORDER [None]
  - MITRAL VALVE INCOMPETENCE [None]
  - MYDRIASIS [None]
  - NASOPHARYNGITIS [None]
  - ORTHOSTATIC HYPOTENSION [None]
  - PAROXYSMAL ARRHYTHMIA [None]
  - PHLEBITIS [None]
  - PROCEDURAL COMPLICATION [None]
  - PROTHROMBIN TIME RATIO DECREASED [None]
  - PULMONARY EMBOLISM [None]
  - RESPIRATORY ARREST [None]
  - SEDATION [None]
  - SINUS ARRHYTHMIA [None]
  - THROMBOSIS [None]
  - TORSADE DE POINTES [None]
  - TRACHEOSTOMY [None]
  - VAGUS NERVE DISORDER [None]
